FAERS Safety Report 12276337 (Version 1)
Quarter: 2016Q2

REPORT INFORMATION
  Report Type: Report from Study
  Country: US (occurrence: US)
  Receive Date: 20160418
  Receipt Date: 20160418
  Transmission Date: 20160815
  Serious: Yes (Hospitalization)
  Sender: FDA-Public Use
  Company Number: US-JAZZ-2016-US-006904

PATIENT
  Sex: Male

DRUGS (1)
  1. VERSACLOZ [Suspect]
     Active Substance: CLOZAPINE
     Dosage: UNK MG, QD
     Route: 048

REACTIONS (3)
  - Cough [Unknown]
  - Decreased appetite [Unknown]
  - Abdominal tenderness [Unknown]
